FAERS Safety Report 6977270-9 (Version None)
Quarter: 2010Q3

REPORT INFORMATION
  Report Type: 
  Country: None (occurrence: None)
  Receive Date: 20100910
  Receipt Date: 20100901
  Transmission Date: 20110219
  Serious: Yes (Congenital Anomaly, Other)
  Sender: FDA-Public Use
  Company Number: GXBR2010US01526

PATIENT
  Sex: Male
  Weight: 12 kg

DRUGS (7)
  1. TACROLIMUS (NGX) [Suspect]
     Dosage: MATERNAL DOSE: 3MG/DAY THEN INCREASED TO 6MG/DAY
     Route: 064
  2. NITROFURANTOIN CAPSULES USP (NGX) [Suspect]
     Dosage: MATERNAL DOSE: UNKNOWN
     Route: 064
  3. PREDNISONE TABLETS USP (NGX) [Suspect]
     Dosage: MATERNAL DOSE: 2.5MG QD, TAPERED FROM 40MG QD TO 10MG QD FROM 12-15TH WEEK
     Route: 064
  4. FAMOTIDINE TABLETS USP (NGX) [Suspect]
     Dosage: MATERNAL DOSE: UNKNOWN
     Route: 064
  5. ASACOL [Suspect]
     Dosage: MATERNAL DOSE: UNKNOWN
     Route: 064
  6. PRENATAL VITAMINS [Suspect]
     Dosage: MATERNAL DOSE: UNKNOWN
     Route: 064
  7. IRON [Suspect]
     Dosage: MATERNAL DOSE: UNKNOWN
     Route: 064

REACTIONS (5)
  - ANAL ATRESIA [None]
  - COLOSTOMY [None]
  - DRUG EXPOSURE DURING PREGNANCY [None]
  - PREMATURE BABY [None]
  - REPAIR OF IMPERFORATE RECTUM [None]
